FAERS Safety Report 12721376 (Version 1)
Quarter: 2016Q3

REPORT INFORMATION
  Report Type: Spontaneous
  Country: US (occurrence: US)
  Receive Date: 20160906
  Receipt Date: 20160906
  Transmission Date: 20161109
  Serious: No
  Sender: FDA-Public Use
  Company Number: None

PATIENT
  Age: 60 Year
  Weight: 195 kg

DRUGS (1)
  1. DUTASTERIDE CAPS 0.5 MG, 0.5 MG STRIDES [Suspect]
     Active Substance: DUTASTERIDE
     Indication: BENIGN PROSTATIC HYPERPLASIA
     Dosage: DUTASTERIDE 90 CAPSULE(S) - ONCE A DAY - TAKEN BY MOUTH
     Route: 048
     Dates: start: 20160901, end: 20160901

REACTIONS (3)
  - Product quality issue [None]
  - Product lot number issue [None]
  - Product physical issue [None]

NARRATIVE: CASE EVENT DATE: 20160901
